FAERS Safety Report 4680315-2 (Version None)
Quarter: 2005Q2

REPORT INFORMATION
  Report Type: 
  Country: None (occurrence: None)
  Receive Date: 20050602
  Receipt Date: 20040603
  Transmission Date: 20051028
  Serious: Yes (Hospitalization)
  Sender: FDA-Public Use
  Company Number: DE-ABBOTT-04P-062-0263382-00

PATIENT
  Sex: Female
  Weight: 74 kg

DRUGS (19)
  1. HUMIRA [Suspect]
     Indication: PSORIATIC ARTHROPATHY
     Route: 058
     Dates: start: 20040430, end: 20040901
  2. HUMIRA [Suspect]
     Route: 058
     Dates: start: 20040916, end: 20041101
  3. HUMIRA [Suspect]
     Route: 058
     Dates: start: 20041118, end: 20050201
  4. HUMIRA [Suspect]
     Route: 058
     Dates: start: 20050226, end: 20050226
  5. HUMIRA [Suspect]
     Route: 058
     Dates: start: 20050305
  6. PREDNISONE TAB [Suspect]
     Indication: PSORIATIC ARTHROPATHY
     Route: 048
     Dates: start: 20040427, end: 20040430
  7. LISINOPRIL [Concomitant]
     Indication: HYPERTENSION
     Route: 048
  8. HYDROCHLOROTHIAZIDE [Concomitant]
     Indication: PSORIATIC ARTHROPATHY
     Route: 048
     Dates: start: 20031201
  9. PREDNISONE TAB [Concomitant]
     Route: 048
     Dates: start: 20020201, end: 20040405
  10. PREDNISONE TAB [Concomitant]
     Route: 048
     Dates: start: 20040406, end: 20040425
  11. PREDNISONE TAB [Concomitant]
     Route: 048
     Dates: start: 20040426, end: 20040426
  12. PREDNISONE TAB [Concomitant]
  13. PREDNISONE TAB [Concomitant]
     Route: 048
     Dates: start: 20040501
  14. COLECALCIFEROL [Concomitant]
     Indication: OSTEOPOROSIS PROPHYLAXIS
     Route: 048
     Dates: start: 20010101
  15. CALCIUM GLUCONATE [Concomitant]
     Indication: OSTEOPOROSIS PROPHYLAXIS
     Route: 048
     Dates: start: 20010101
  16. LEFLUNOMIDE [Concomitant]
     Indication: PSORIATIC ARTHROPATHY
     Route: 048
     Dates: start: 20000101
  17. CANDESARTAN CILEXETIL [Concomitant]
     Indication: HYPERTENSION
     Route: 048
     Dates: start: 20050201
  18. MAGNESIUM [Concomitant]
     Indication: ARRHYTHMIA
     Route: 048
     Dates: start: 20041101
  19. MOXONIDINE [Concomitant]
     Indication: OESTROGEN DEFICIENCY
     Route: 048
     Dates: start: 20050201

REACTIONS (8)
  - ANTINUCLEAR ANTIBODY POSITIVE [None]
  - ASTHENIA [None]
  - FATIGUE [None]
  - HEADACHE [None]
  - INFECTION [None]
  - INJECTION SITE IRRITATION [None]
  - NAUSEA [None]
  - VOMITING [None]
